FAERS Safety Report 20074637 (Version 9)
Quarter: 2023Q2

REPORT INFORMATION
  Report Type: Spontaneous
  Country: US (occurrence: US)
  Receive Date: 20211116
  Receipt Date: 20230426
  Transmission Date: 20230721
  Serious: Yes (Other)
  Sender: FDA-Public Use
  Company Number: US-PFIZER INC-202101512607

PATIENT
  Age: 63 Year
  Sex: Female
  Weight: 97.52 kg

DRUGS (1)
  1. XALKORI [Suspect]
     Active Substance: CRIZOTINIB
     Indication: Lymphoma
     Dosage: 250 MG, 2X/DAY (MORNING AND NIGHT)
     Dates: start: 202104

REACTIONS (9)
  - Loss of consciousness [Not Recovered/Not Resolved]
  - Dizziness [Not Recovered/Not Resolved]
  - Diarrhoea [Not Recovered/Not Resolved]
  - Tremor [Unknown]
  - Dyspepsia [Not Recovered/Not Resolved]
  - Throat irritation [Unknown]
  - Constipation [Unknown]
  - Oesophageal pain [Unknown]
  - Off label use [Unknown]

NARRATIVE: CASE EVENT DATE: 20210101
